FAERS Safety Report 7138345-7 (Version None)
Quarter: 2010Q4

REPORT INFORMATION
  Report Type: 
  Country: None (occurrence: None)
  Receive Date: 20101206
  Receipt Date: 20101124
  Transmission Date: 20110411
  Serious: Yes (Death)
  Sender: FDA-Public Use
  Company Number: GXKR2010KW13321

PATIENT
  Age: 8 Year
  Sex: Male

DRUGS (3)
  1. CISPLATIN [Suspect]
     Dosage: 720 MG/M2 (CUMULATIVE DOSE)
     Route: 065
  2. DOXORUBICIN (NGX) [Suspect]
     Dosage: 450 MG/M2 (CUMULATIVE DOSE)
     Route: 065
  3. METHOTREXATE (NGX) [Suspect]
     Dosage: 144 G/M2 (CUMULATIVE DOSE)
     Route: 065

REACTIONS (5)
  - ACUTE MYELOID LEUKAEMIA [None]
  - BONE MARROW FAILURE [None]
  - MARROW HYPERPLASIA [None]
  - PULMONARY HAEMORRHAGE [None]
  - PURPURA [None]
